FAERS Safety Report 6785685-7 (Version None)
Quarter: 2010Q2

REPORT INFORMATION
  Report Type: 
  Country: None (occurrence: None)
  Receive Date: 20100621
  Receipt Date: 20100621
  Transmission Date: 20101027
  Serious: Yes (Hospitalization)
  Sender: FDA-Public Use
  Company Number: None

PATIENT
  Age: 70 Year
  Sex: Male
  Weight: 79.5 kg

DRUGS (16)
  1. ASPIRIN [Suspect]
     Dosage: 81MG DAILY PO  CHRONIC
     Route: 048
  2. CELECOXIB [Suspect]
     Dosage: 100MG BID PRN PO CHRONIC
     Route: 048
  3. ZOCOR [Concomitant]
  4. EUCERIN [Concomitant]
  5. IMODIUM [Concomitant]
  6. TYLENOL [Concomitant]
  7. RISPERIDONE [Concomitant]
  8. ERYTHROMYCIN [Concomitant]
  9. BENZTROPINE MESYLATE [Concomitant]
  10. CA+ VIT D [Concomitant]
  11. FLONASE [Concomitant]
  12. FOSAMAX [Concomitant]
  13. KETOCONAZOLE [Concomitant]
  14. NEOSPORIN [Concomitant]
  15. DEPAKOTE [Concomitant]
  16. M.V.I. [Concomitant]

REACTIONS (2)
  - COLITIS [None]
  - LARGE INTESTINAL HAEMORRHAGE [None]
